FAERS Safety Report 8407709-3 (Version None)
Quarter: 2012Q2

REPORT INFORMATION
  Report Type: 
  Country: None (occurrence: None)
  Receive Date: 20120604
  Receipt Date: 20120529
  Transmission Date: 20120825
  Serious: No
  Sender: FDA-Public Use
  Company Number: US-BAYER-2012-054325

PATIENT

DRUGS (1)
  1. ALEVE (CAPLET) [Suspect]
     Indication: MIGRAINE
     Dosage: 3 DF, UNK
     Dates: start: 20120529

REACTIONS (3)
  - HEADACHE [None]
  - NECK PAIN [None]
  - MIGRAINE [None]
